FAERS Safety Report 9597974 (Version 1)
Quarter: 2013Q4

REPORT INFORMATION
  Report Type: Spontaneous
  Country: US (occurrence: US)
  Receive Date: 20131004
  Receipt Date: 20131004
  Transmission Date: 20140711
  Serious: No
  Sender: FDA-Public Use
  Company Number: US-AMGEN-USASP2013021651

PATIENT
  Age: 47 Year
  Sex: Female
  Weight: 113.38 kg

DRUGS (11)
  1. ENBREL [Suspect]
     Indication: PRODUCT USED FOR UNKNOWN INDICATION
     Dosage: 50 MG, QWK
     Route: 058
  2. FOLIC ACID [Concomitant]
     Dosage: 1 MG, UNK
  3. DIOVAN [Concomitant]
     Dosage: 40 MG, UNK
  4. ARAVA [Concomitant]
     Dosage: 10 MG, UNK
  5. LYRICA [Concomitant]
     Dosage: 25 MG, UNK
  6. METHOTREXATE [Concomitant]
     Dosage: 2.5 MG, UNK
  7. SYNTHROID [Concomitant]
     Dosage: 25 MUL, UNK
  8. PAROXETINE [Concomitant]
     Dosage: 10 MG, UNK
  9. MELOXICAM [Concomitant]
     Dosage: 7.5 MG, UNK
  10. VITAMIN C                          /00008001/ [Concomitant]
     Dosage: 500 MG,  (SR)
  11. FISH OIL [Concomitant]
     Dosage: UNK

REACTIONS (1)
  - Drug effect decreased [Unknown]
